FAERS Safety Report 10920100 (Version 3)
Quarter: 2015Q1

REPORT INFORMATION
  Report Type: Report from Study
  Country: KR (occurrence: KR)
  Receive Date: 20150317
  Receipt Date: 20150324
  Transmission Date: 20150721
  Serious: Yes (Other)
  Sender: FDA-Public Use
  Company Number: PHHY2015KR029244

PATIENT
  Age: 46 Year
  Sex: Female

DRUGS (4)
  1. MAGNESIO//MAGNESIUM OXIDE [Concomitant]
     Indication: CONSTIPATION
     Dosage: 750 MG, UNK
     Route: 048
     Dates: start: 20140930
  2. AMN107 [Suspect]
     Active Substance: NILOTINIB
     Dosage: 150 MG, BID
     Route: 048
     Dates: start: 20141217
  3. AMN107 [Suspect]
     Active Substance: NILOTINIB
     Indication: CHRONIC MYELOID LEUKAEMIA
     Dosage: 150 MG, BID
     Route: 048
     Dates: start: 20141003, end: 20141211
  4. CITOPCIN [Concomitant]
     Indication: URINARY TRACT INFECTION
     Dosage: 1000 MG, UNK
     Route: 048
     Dates: start: 20141002, end: 20141008

REACTIONS (1)
  - Neutropenia [Recovered/Resolved]

NARRATIVE: CASE EVENT DATE: 20141210
